FAERS Safety Report 8621688-5 (Version None)
Quarter: 2012Q3

REPORT INFORMATION
  Report Type: 
  Country: None (occurrence: None)
  Receive Date: 20120825
  Receipt Date: 20120720
  Transmission Date: 20120928
  Serious: No
  Sender: FDA-Public Use
  Company Number: US-009507513-1207USA008631

PATIENT

DRUGS (1)
  1. IMPLANON [Suspect]
     Indication: CONTRACEPTION
     Dosage: 1 DF, UNK
     Route: 058
     Dates: start: 20090801

REACTIONS (6)
  - COMPLICATION OF DEVICE INSERTION [None]
  - DEVICE DIFFICULT TO USE [None]
  - INCORRECT DRUG ADMINISTRATION DURATION [None]
  - PAIN IN EXTREMITY [None]
  - PARAESTHESIA [None]
  - MEDICAL DEVICE COMPLICATION [None]
